FAERS Safety Report 24583755 (Version 3)
Quarter: 2025Q1

REPORT INFORMATION
  Report Type: Spontaneous
  Country: US (occurrence: US)
  Receive Date: 20241106
  Receipt Date: 20250107
  Transmission Date: 20250409
  Serious: No
  Sender: AMGEN
  Company Number: US-AMGEN-USASP2024215745

PATIENT
  Age: 75 Year
  Sex: Male
  Weight: 103.4 kg

DRUGS (2)
  1. NEULASTA [Suspect]
     Active Substance: PEGFILGRASTIM
     Indication: Lung neoplasm malignant
     Route: 065
  2. NEULASTA [Suspect]
     Active Substance: PEGFILGRASTIM
     Route: 065

REACTIONS (8)
  - Drug dose omission by device [Unknown]
  - Unintentional medical device removal [Unknown]
  - Cellulitis [Recovered/Resolved]
  - Joint range of motion decreased [Unknown]
  - Pain [Unknown]
  - Peripheral swelling [Recovered/Resolved]
  - Contusion [Unknown]
  - Arthralgia [Unknown]

NARRATIVE: CASE EVENT DATE: 20241024
